FAERS Safety Report 5849801-3 (Version None)
Quarter: 2008Q3

REPORT INFORMATION
  Report Type: 
  Country: None (occurrence: None)
  Receive Date: 20080731
  Receipt Date: 20080603
  Transmission Date: 20090109
  Serious: No
  Sender: FDA-Public Use
  Company Number: US200806000867

PATIENT
  Age: 59 Year
  Sex: Female

DRUGS (6)
  1. BYETTA [Suspect]
     Indication: INSULIN-REQUIRING TYPE 2 DIABETES MELLITUS
     Dosage: 5 UG, 2/D, SUBCUTANEOUS ; 10 UG, 2/D, SUBCUTANEOUS
     Route: 058
     Dates: start: 20080201, end: 20080301
  2. BYETTA [Suspect]
     Indication: INSULIN-REQUIRING TYPE 2 DIABETES MELLITUS
     Dosage: 5 UG, 2/D, SUBCUTANEOUS ; 10 UG, 2/D, SUBCUTANEOUS
     Route: 058
     Dates: start: 20080301
  3. DRUG USED IN DIABETES [Concomitant]
  4. HUMALOG [Concomitant]
  5. LEVEMIR [Concomitant]
  6. METFORMIN HCL [Concomitant]

REACTIONS (3)
  - NAUSEA [None]
  - RASH [None]
  - SINUSITIS [None]
